FAERS Safety Report 7573510-6 (Version None)
Quarter: 2011Q2

REPORT INFORMATION
  Report Type: 
  Country: None (occurrence: None)
  Receive Date: 20110627
  Receipt Date: 20110622
  Transmission Date: 20111010
  Serious: Yes (Death, Other)
  Sender: FDA-Public Use
  Company Number: PHHY2011JP55815

PATIENT
  Age: 68 Year
  Sex: Female

DRUGS (3)
  1. CYCLOSPORINE [Suspect]
     Indication: APLASTIC ANAEMIA
     Dosage: 200 MG, QD
     Route: 048
     Dates: start: 20100501
  2. ANTI-THYMOCYTE GLOBULIN NOS [Concomitant]
     Indication: APLASTIC ANAEMIA
  3. PRIMOBOLAN-DEPOT INJ [Concomitant]
     Indication: APLASTIC ANAEMIA

REACTIONS (5)
  - DIFFUSE LARGE B-CELL LYMPHOMA [None]
  - STENOTROPHOMONAS INFECTION [None]
  - MULTI-ORGAN FAILURE [None]
  - ANAEMIA [None]
  - CYTOMEGALOVIRUS TEST POSITIVE [None]
